FAERS Safety Report 12165123 (Version 1)
Quarter: 2016Q1

REPORT INFORMATION
  Report Type: Report from Study
  Country: US (occurrence: US)
  Receive Date: 20160309
  Receipt Date: 20160309
  Transmission Date: 20160526
  Serious: No
  Sender: FDA-Public Use
  Company Number: US-ABBVIE-15P-163-1370757-00

PATIENT
  Age: 34 Year
  Sex: Female

DRUGS (3)
  1. LUPRON DEPOT [Suspect]
     Active Substance: LEUPROLIDE ACETATE
     Indication: ENDOMETRIOSIS
     Route: 065
     Dates: start: 20150310
  2. TYLENOL COLD-S [Concomitant]
     Indication: HYPERSENSITIVITY
     Route: 065
  3. VITAFUSION CALCIUM [Concomitant]
     Indication: PRODUCT USED FOR UNKNOWN INDICATION
     Dosage: TWO (500MG/1000IU)
     Route: 065

REACTIONS (9)
  - Injection site pruritus [Not Recovered/Not Resolved]
  - Uterine spasm [Recovered/Resolved]
  - Hot flush [Recovering/Resolving]
  - Feeling hot [Unknown]
  - Fatigue [Unknown]
  - Injection site mass [Unknown]
  - Injection site erythema [Unknown]
  - Abdominal pain [Not Recovered/Not Resolved]
  - Menstruation delayed [Unknown]

NARRATIVE: CASE EVENT DATE: 20150310
